FAERS Safety Report 12290822 (Version 2)
Quarter: 2016Q3

REPORT INFORMATION
  Report Type: Spontaneous
  Country: US (occurrence: US)
  Receive Date: 20160421
  Receipt Date: 20160803
  Transmission Date: 20161109
  Serious: Yes (Other)
  Sender: FDA-Public Use
  Company Number: GXBR2016US001278

PATIENT
  Age: 49 Year
  Sex: Female
  Weight: 64.85 kg

DRUGS (1)
  1. AMOXICILLIN AND CLAVULANATE POTASSIUM TABLETS USP [Suspect]
     Active Substance: AMOXICILLIN\CLAVULANATE POTASSIUM
     Indication: SINUSITIS
     Dosage: 875MG AMOXICILLIN, 125MG CLAVULANATE BID
     Route: 048
     Dates: start: 20151201, end: 20151204

REACTIONS (9)
  - Gastric ulcer [Unknown]
  - Anaemia [Recovering/Resolving]
  - Nausea [Recovered/Resolved]
  - Haemoptysis [Recovered/Resolved]
  - Duodenal perforation [Recovering/Resolving]
  - Dyspepsia [Recovering/Resolving]
  - Diarrhoea [Recovered/Resolved]
  - Chest pain [Recovering/Resolving]
  - Sensation of foreign body [Recovered/Resolved]

NARRATIVE: CASE EVENT DATE: 20151202
